FAERS Safety Report 7737576-2 (Version None)
Quarter: 2011Q3

REPORT INFORMATION
  Report Type: 
  Country: None (occurrence: None)
  Receive Date: 20110908
  Receipt Date: 20110902
  Transmission Date: 20111222
  Serious: Yes (Other)
  Sender: FDA-Public Use
  Company Number: US-MERCK-1106USA00976

PATIENT
  Age: 58 Year
  Sex: Male

DRUGS (3)
  1. PRAVASTATIN SODIUM [Concomitant]
     Indication: LIPIDS ABNORMAL
     Route: 065
  2. ZETIA [Concomitant]
     Indication: LIPIDS ABNORMAL
     Route: 065
  3. JANUVIA [Suspect]
     Indication: TYPE 2 DIABETES MELLITUS
     Route: 048

REACTIONS (1)
  - HEPATITIS ACUTE [None]
